FAERS Safety Report 21550148 (Version 1)
Quarter: 2022Q4

REPORT INFORMATION
  Report Type: Spontaneous
  Country: CA (occurrence: CA)
  Receive Date: 20221103
  Receipt Date: 20221103
  Transmission Date: 20230113
  Serious: Yes (Other)
  Sender: FDA-Public Use
  Company Number: CA-ASPEN-GLO2020CA006919

PATIENT
  Sex: Male

DRUGS (11)
  1. METHOTREXATE [Suspect]
     Active Substance: METHOTREXATE
     Indication: Rheumatoid arthritis
     Dosage: 1 DOSAGE FORM, QW
     Route: 048
  2. RITUXIMAB [Suspect]
     Active Substance: RITUXIMAB
     Indication: Rheumatoid arthritis
     Dosage: 1 G
     Route: 042
  3. NEORAL [Suspect]
     Active Substance: CYCLOSPORINE
     Indication: Product used for unknown indication
     Dosage: 125 MG, BID
     Route: 065
  4. AZATHIOPRINE [Suspect]
     Active Substance: AZATHIOPRINE
     Indication: Product used for unknown indication
     Dosage: 150 MG, TID
     Route: 065
  5. ARAVA [Suspect]
     Active Substance: LEFLUNOMIDE
     Indication: Rheumatoid arthritis
     Dosage: 20 MG, QD
     Route: 065
  6. ENBREL [Suspect]
     Active Substance: ETANERCEPT
     Indication: Rheumatoid arthritis
     Dosage: 50 MG, QW (1 DOSE WEEKLY)
     Route: 058
  7. HYDROXYCHLOROQUINE SULFATE [Suspect]
     Active Substance: HYDROXYCHLOROQUINE SULFATE
     Indication: Rheumatoid arthritis
     Dosage: 200 MG, QD
     Route: 065
  8. SULFASALAZINE [Suspect]
     Active Substance: SULFASALAZINE
     Indication: Rheumatoid arthritis
     Dosage: 1 G, BID
     Route: 048
  9. CITALOPRAM HYDROBROMIDE [Concomitant]
     Active Substance: CITALOPRAM HYDROBROMIDE
     Indication: Product used for unknown indication
     Dosage: 1 DOSAGE FORM, QW (1 DOSE WEEKLY)
     Route: 065
  10. CITALOPRAM HYDROBROMIDE [Concomitant]
     Active Substance: CITALOPRAM HYDROBROMIDE
     Dosage: 40 MG
     Route: 065
  11. PREDNISONE [Concomitant]
     Active Substance: PREDNISONE
     Indication: Product used for unknown indication
     Dosage: 10 MG
     Route: 065

REACTIONS (16)
  - Back pain [Not Recovered/Not Resolved]
  - Feeling abnormal [Not Recovered/Not Resolved]
  - Foot deformity [Not Recovered/Not Resolved]
  - Limb deformity [Not Recovered/Not Resolved]
  - Hand deformity [Not Recovered/Not Resolved]
  - Pain [Not Recovered/Not Resolved]
  - Squamous cell carcinoma [Not Recovered/Not Resolved]
  - Musculoskeletal pain [Not Recovered/Not Resolved]
  - Arthralgia [Not Recovered/Not Resolved]
  - Depression [Not Recovered/Not Resolved]
  - Leukopenia [Not Recovered/Not Resolved]
  - Pain in extremity [Not Recovered/Not Resolved]
  - Pruritus [Not Recovered/Not Resolved]
  - Rash [Not Recovered/Not Resolved]
  - Drug ineffective [Unknown]
  - Treatment failure [Unknown]
